FAERS Safety Report 6335239-1 (Version None)
Quarter: 2009Q3

REPORT INFORMATION
  Report Type: 
  Country: None (occurrence: None)
  Receive Date: 20090827
  Receipt Date: 20090817
  Transmission Date: 20100115
  Serious: Yes (Life-Threatening, Hospitalization)
  Sender: FDA-Public Use
  Company Number: AUR-APL-2009-00443

PATIENT
  Age: 21 Year
  Sex: Male

DRUGS (5)
  1. ONDANSETRON [Suspect]
     Indication: PROCEDURAL NAUSEA
     Dosage: 4MG- IV
     Route: 042
     Dates: start: 20090805
  2. COMPOUND SODIUM LACTATE INJECTION [Concomitant]
  3. FENTANYL [Concomitant]
  4. MORPHINE [Concomitant]
  5. PROPOFOL [Concomitant]

REACTIONS (7)
  - ABNORMAL BEHAVIOUR [None]
  - CONVULSION [None]
  - HYPERSENSITIVITY [None]
  - INCOHERENT [None]
  - LOSS OF CONSCIOUSNESS [None]
  - PRURITUS [None]
  - RASH MACULAR [None]
